FAERS Safety Report 6111740-0 (Version None)
Quarter: 2009Q1

REPORT INFORMATION
  Report Type: 
  Country: None (occurrence: None)
  Receive Date: 20090310
  Receipt Date: 20090310
  Transmission Date: 20090719
  Serious: Yes (Other)
  Sender: FDA-Public Use
  Company Number: None

PATIENT
  Age: 35 Year
  Sex: Female
  Weight: 61.2356 kg

DRUGS (1)
  1. ISOTRETINOIN [Suspect]

REACTIONS (3)
  - DRUG HYPERSENSITIVITY [None]
  - LUPUS-LIKE SYNDROME [None]
  - TENDON PAIN [None]
